FAERS Safety Report 19690802 (Version 1)
Quarter: 2021Q3

REPORT INFORMATION
  Report Type: Spontaneous
  Country: US (occurrence: US)
  Receive Date: 20210812
  Receipt Date: 20210812
  Transmission Date: 20211014
  Serious: No
  Sender: FDA-Public Use
  Company Number: None

PATIENT
  Sex: Female
  Weight: 77.85 kg

DRUGS (17)
  1. FAMOTIDINE. [Concomitant]
     Active Substance: FAMOTIDINE
  2. VITAMIN C [Concomitant]
     Active Substance: ASCORBIC ACID
  3. GABAPENTIN. [Concomitant]
     Active Substance: GABAPENTIN
  4. SIMVASTATIN. [Concomitant]
     Active Substance: SIMVASTATIN
  5. ZINC. [Concomitant]
     Active Substance: ZINC
  6. BOSULIF [Suspect]
     Active Substance: BOSUTINIB MONOHYDRATE
     Indication: CHRONIC MYELOID LEUKAEMIA
     Route: 048
     Dates: start: 20210716
  7. ARIMIDEX [Concomitant]
     Active Substance: ANASTROZOLE
  8. ALLERGY RELIEF [Concomitant]
  9. ONDANSTRON [Concomitant]
  10. FIBER [Concomitant]
     Active Substance: PSYLLIUM HUSK
  11. ACETAMINOPHEN. [Concomitant]
     Active Substance: ACETAMINOPHEN
  12. LEVOTHYROXINE. [Concomitant]
     Active Substance: LEVOTHYROXINE
  13. PRILOSEC [Concomitant]
     Active Substance: OMEPRAZOLE MAGNESIUM
  14. ALPRAZOLAM. [Concomitant]
     Active Substance: ALPRAZOLAM
  15. IMODIUM AD [Concomitant]
     Active Substance: LOPERAMIDE HYDROCHLORIDE
  16. MULTIVITAMIN [Concomitant]
     Active Substance: VITAMINS
  17. VITAMIN B COMPLEX [Concomitant]
     Active Substance: CYANOCOBALAMIN\DEXPANTHENOL\NIACINAMIDE\PYRIDOXINE HYDROCHLORIDE\RIBOFLAVIN 5^-PHOSPHATE SODIUM\THIAMINE HYDROCHLORIDE\VITAMIN B COMPLEX

REACTIONS (6)
  - Liver function test abnormal [None]
  - Abdominal distension [None]
  - Joint swelling [None]
  - Chest discomfort [None]
  - Blood alkaline phosphatase increased [None]
  - Headache [None]
